FAERS Safety Report 9311838 (Version 2)
Quarter: 2013Q2

REPORT INFORMATION
  Report Type: Report from Study
  Country: AU (occurrence: AU)
  Receive Date: 20130528
  Receipt Date: 20130624
  Transmission Date: 20140414
  Serious: Yes (Disabling, Other)
  Sender: FDA-Public Use
  Company Number: PHHY2013AU030234

PATIENT
  Age: 79 Year
  Sex: Female

DRUGS (19)
  1. ACLASTA [Suspect]
     Indication: OSTEOPOROSIS
     Dosage: 5 MG/100ML
     Route: 042
     Dates: start: 20110316
  2. ACLASTA [Suspect]
     Dosage: 5 MG/100ML
     Route: 042
     Dates: start: 20120222
  3. ACLASTA [Suspect]
     Dosage: 5 MG/100ML
     Route: 042
     Dates: start: 20130502
  4. ASASANTIN [Concomitant]
     Indication: CEREBROVASCULAR INSUFFICIENCY
     Dosage: 1 DF, BID
     Route: 048
  5. COVERAM [Concomitant]
     Indication: HYPERTENSION
     Dosage: 1 DF DAILY
     Route: 048
  6. LIPITOR [Concomitant]
     Indication: HYPERCHOLESTEROLAEMIA
     Dosage: 1 DF AS DIRECTED
     Route: 048
  7. MEGAFOL [Concomitant]
     Indication: RHEUMATOID ARTHRITIS
     Dosage: 1 DF DAILY 6 DAYS PER WEEK
     Route: 048
  8. METHOTREXATE [Concomitant]
     Indication: RHEUMATOID ARTHRITIS
     Dosage: 1 DF WEEKLY ON THURSDAYS
     Route: 048
  9. MICARDIS [Concomitant]
     Indication: HYPERTENSION
     Dosage: 1 DF, UNK
     Route: 048
  10. MOBIC [Concomitant]
     Indication: RHEUMATOID ARTHRITIS
     Dosage: 1 DF DAILY WITH MEALS
     Route: 048
  11. NITROLINGUAL-PUMPSPRAY [Concomitant]
     Indication: ANGINA PECTORIS
     Dosage: 1-2 DAILY EVERY 5 MINUTES
     Route: 060
  12. PANADEINE FORTE [Concomitant]
     Indication: SCIATICA
     Dosage: 1 DF, BID PRN
     Route: 048
  13. PLAQUENIL [Concomitant]
     Indication: RHEUMATOID ARTHRITIS
     Dosage: 2 DF MANE
     Route: 048
  14. PREDNISONE [Concomitant]
     Indication: ASTHMA
     Dosage: 1.5 DF DAILY WITH FOOD FOR 5 DAYS
     Route: 048
  15. PREDNISONE [Concomitant]
     Dosage: 0.5 DF EVERY 3 DAYS
     Route: 048
  16. RHINOCORT AQUA [Concomitant]
     Indication: SINUS OPERATION
     Dosage: 1 DF DAILY BOTH SIDES
  17. SERETIDE [Concomitant]
     Indication: ASTHMA
     Dosage: 2 DF, BID
  18. TILADE [Concomitant]
     Indication: ASTHMA
     Dosage: 2 DF, QID PRN
  19. VENTOLIN [Concomitant]
     Indication: ASTHMA
     Dosage: 2 DF, Q4H IF REQUIRED

REACTIONS (3)
  - Radius fracture [Recovered/Resolved]
  - Fall [Unknown]
  - Vitamin D decreased [Unknown]
